FAERS Safety Report 25348819 (Version 2)
Quarter: 2025Q2

REPORT INFORMATION
  Report Type: Spontaneous
  Country: US (occurrence: US)
  Receive Date: 20250522
  Receipt Date: 20250602
  Transmission Date: 20250716
  Serious: Yes (Other)
  Sender: SANOFI AVENTIS
  Company Number: US-SA-2025SA146103

PATIENT
  Age: 77 Year
  Sex: Female

DRUGS (3)
  1. DUPIXENT [Suspect]
     Active Substance: DUPILUMAB
     Indication: Pemphigoid
     Route: 058
     Dates: start: 20250515, end: 20250515
  2. DUPIXENT [Suspect]
     Active Substance: DUPILUMAB
     Dosage: 300 MG, QOW
     Route: 058
     Dates: start: 20250528
  3. TIKOSYN [Concomitant]
     Active Substance: DOFETILIDE
     Indication: Atrial fibrillation
     Dates: start: 20250512

REACTIONS (9)
  - Pemphigoid [Not Recovered/Not Resolved]
  - Condition aggravated [Not Recovered/Not Resolved]
  - Upper-airway cough syndrome [Unknown]
  - Respiratory tract congestion [Unknown]
  - Burning sensation [Unknown]
  - Sleep disorder due to a general medical condition [Unknown]
  - Neuropathy peripheral [Unknown]
  - Condition aggravated [Unknown]
  - Off label use [Unknown]

NARRATIVE: CASE EVENT DATE: 20250501
